FAERS Safety Report 16135410 (Version 3)
Quarter: 2019Q2

REPORT INFORMATION
  Report Type: Report from Study
  Country: FR (occurrence: FR)
  Receive Date: 20190329
  Receipt Date: 20190412
  Transmission Date: 20190711
  Serious: Yes (Hospitalization)
  Sender: FDA-Public Use
  Company Number: FR-JNJFOC-20190332179

PATIENT
  Age: 30 Year
  Sex: Male
  Weight: 69 kg

DRUGS (3)
  1. YONDELIS [Suspect]
     Active Substance: TRABECTEDIN
     Route: 042
  2. YONDELIS [Suspect]
     Active Substance: TRABECTEDIN
     Indication: SOFT TISSUE SARCOMA
     Dosage: CYCLE 1 TO 3
     Route: 042
     Dates: start: 20190205, end: 20190226
  3. DURVALUMAB. [Suspect]
     Active Substance: DURVALUMAB
     Indication: SOFT TISSUE SARCOMA
     Dosage: CYCLE 1 TO 3
     Route: 042
     Dates: start: 20190206, end: 20190227

REACTIONS (1)
  - Pneumonitis [Recovered/Resolved]

NARRATIVE: CASE EVENT DATE: 20190319
